FAERS Safety Report 5565000-7 (Version None)
Quarter: 2007Q4

REPORT INFORMATION
  Report Type: 
  Country: None (occurrence: None)
  Receive Date: 20071218
  Receipt Date: 20071127
  Transmission Date: 20080405
  Serious: No
  Sender: FDA-Public Use
  Company Number: US-BAYER-200712123BCC

PATIENT
  Age: 56 Year
  Sex: Female
  Weight: 68 kg

DRUGS (4)
  1. ALEVE COLD AND SINUS [Suspect]
     Indication: SINUS HEADACHE
     Dosage: AS USED: 220/120 MG  UNIT DOSE: 220 MG
     Route: 048
     Dates: start: 20070630, end: 20070701
  2. TENORMIN [Concomitant]
  3. PAXIL [Concomitant]
  4. LIPITOR [Concomitant]

REACTIONS (2)
  - HEADACHE [None]
  - SINUS HEADACHE [None]
